FAERS Safety Report 25845268 (Version 1)
Quarter: 2025Q3

REPORT INFORMATION
  Report Type: Spontaneous
  Country: EU (occurrence: EU)
  Receive Date: 20250925
  Receipt Date: 20250925
  Transmission Date: 20251020
  Serious: Yes (Hospitalization, Other)
  Sender: VIIV
  Company Number: EU-VIIV HEALTHCARE ULC-LV2025EME117584

PATIENT
  Age: 43 Year
  Sex: Female

DRUGS (4)
  1. KIVEXA [Suspect]
     Active Substance: ABACAVIR SULFATE\LAMIVUDINE
     Indication: HIV infection
  2. RALTEGRAVIR [Suspect]
     Active Substance: RALTEGRAVIR
     Indication: HIV infection
  3. RALTEGRAVIR [Suspect]
     Active Substance: RALTEGRAVIR
  4. OSELTAMIVIR [Suspect]
     Active Substance: OSELTAMIVIR
     Indication: Influenza

REACTIONS (5)
  - Dermatitis allergic [Unknown]
  - Seizure [Unknown]
  - Influenza [Unknown]
  - Pathogen resistance [Unknown]
  - Exposure during pregnancy [Unknown]

NARRATIVE: CASE EVENT DATE: 20180501
